FAERS Safety Report 4518093-X (Version None)
Quarter: 2004Q4

REPORT INFORMATION
  Report Type: 
  Country: None (occurrence: None)
  Receive Date: 20041130
  Receipt Date: 20041123
  Transmission Date: 20050328
  Serious: Yes (Death)
  Sender: FDA-Public Use
  Company Number: GBWYE191710NOV04

PATIENT
  Age: 39 Year
  Sex: Female

DRUGS (4)
  1. EFFEXOR [Suspect]
     Indication: PSYCHOTIC DISORDER
     Dosage: SEE IMAGE
     Dates: start: 20010201
  2. DALMANE [Concomitant]
  3. RISPERDAL [Concomitant]
  4. CHLORPROMAZINE [Concomitant]

REACTIONS (2)
  - CHOKING [None]
  - CIRCULATORY COLLAPSE [None]
